FAERS Safety Report 8808645 (Version 1)
Quarter: 2012Q4

REPORT INFORMATION
  Report Type: 
  Country: VE (occurrence: VE)
  Receive Date: 20120926
  Receipt Date: 20120926
  Transmission Date: 20130627
  Serious: Yes (Hospitalization, Other)
  Sender: FDA-Public Use
  Company Number: PHHY2012VE083251

PATIENT
  Sex: Female

DRUGS (4)
  1. DIOVAN HCT [Suspect]
     Indication: HYPERTENSION
     Dosage: 1 DF (160/25 mg valsartan/HCT), QD
     Route: 048
     Dates: start: 2006
  2. CARVEDILOL [Concomitant]
     Indication: HYPERTENSION
     Dosage: 1 DF, QD
     Route: 048
     Dates: start: 2011
  3. CORASPIN [Concomitant]
     Indication: HYPERTENSION
     Dosage: 1 DF, QD
     Route: 048
  4. LIVIAL [Concomitant]
     Indication: MENOPAUSE
     Dosage: 1 DF, QD
     Route: 048
     Dates: start: 2007

REACTIONS (2)
  - Breast cancer [Recovered/Resolved]
  - Breast cyst [Recovered/Resolved]
